FAERS Safety Report 13434232 (Version 1)
Quarter: 2017Q2

REPORT INFORMATION
  Report Type: Spontaneous
  Country: US (occurrence: US)
  Receive Date: 20170413
  Receipt Date: 20170413
  Transmission Date: 20170830
  Serious: No
  Sender: FDA-Public Use
  Company Number: US-FERRINGPH-2016FE01467

PATIENT
  Age: 52 Year
  Sex: Male
  Weight: 78 kg

DRUGS (2)
  1. FIRMAGON [Suspect]
     Active Substance: DEGARELIX ACETATE
     Indication: PROSTATE CANCER
     Dosage: 240 MG, ONCE/SINGLE
     Route: 058
     Dates: start: 20160121, end: 20160121
  2. VIAGRA [Concomitant]
     Active Substance: SILDENAFIL CITRATE
     Route: 065

REACTIONS (3)
  - Blood testosterone decreased [Not Recovered/Not Resolved]
  - Hot flush [Not Recovered/Not Resolved]
  - Libido decreased [Not Recovered/Not Resolved]

NARRATIVE: CASE EVENT DATE: 201602
